FAERS Safety Report 7069148 (Version 8)
Quarter: 2012Q4

REPORT INFORMATION
  Report Type: Report from Study
  Country: CN (occurrence: CN)
  Receive Date: 20090731
  Receipt Date: 20120928
  Transmission Date: 20130627
  Serious: Yes (Hospitalization)
  Sender: FDA-Public Use
  Company Number: CN-JNJFOC-20090706822

PATIENT
  Age: 41 Year
  Sex: Female
  Weight: 60 kg

DRUGS (2)
  1. PLACEBO [Suspect]
     Indication: PSORIASIS
     Dosage: given at weeks 0, 2 and 6
     Route: 042
     Dates: start: 20090504, end: 20090713
  2. BLINDED, INFLIXIMAB RECOMBINANT [Suspect]

REACTIONS (6)
  - Pulmonary tuberculosis [Not Recovered/Not Resolved]
  - Pulmonary mass [None]
  - Blood lactate dehydrogenase increased [None]
  - Aspartate aminotransferase increased [None]
  - Gamma-glutamyltransferase increased [None]
  - Alanine aminotransferase increased [None]
